FAERS Safety Report 9703983 (Version 4)
Quarter: 2014Q1

REPORT INFORMATION
  Report Type: Spontaneous
  Country: US (occurrence: US)
  Receive Date: 20131122
  Receipt Date: 20140103
  Transmission Date: 20141002
  Serious: No
  Sender: FDA-Public Use
  Company Number: US-PFIZER INC-2013333833

PATIENT
  Age: 54 Year
  Sex: Female
  Weight: 86.2 kg

DRUGS (3)
  1. CHANTIX [Suspect]
     Indication: SMOKING CESSATION THERAPY
     Dosage: 0.5 MG, 1X/DAY
     Route: 048
     Dates: start: 20130401, end: 2013
  2. CHANTIX [Suspect]
     Dosage: UNK
     Route: 048
     Dates: start: 2013, end: 201305
  3. CHANTIX [Suspect]
     Dosage: UNK
     Route: 048
     Dates: start: 2013, end: 2013

REACTIONS (9)
  - Disorientation [Not Recovered/Not Resolved]
  - Depression [Not Recovered/Not Resolved]
  - Performance status decreased [Not Recovered/Not Resolved]
  - Psychomotor hyperactivity [Not Recovered/Not Resolved]
  - Fall [Unknown]
  - Pain [Unknown]
  - Back pain [Unknown]
  - Headache [Unknown]
  - Malaise [Unknown]
